FAERS Safety Report 12281868 (Version 1)
Quarter: 2016Q2

REPORT INFORMATION
  Report Type: Spontaneous
  Country: US (occurrence: None)
  Receive Date: 20160418
  Receipt Date: 20160418
  Transmission Date: 20160815
  Serious: No
  Sender: FDA-Public Use
  Company Number: None

PATIENT
  Sex: Male
  Weight: 10.89 kg

DRUGS (2)
  1. SALINE NASAL DROPS/SPRAY (LITTLE REMEDIES) [Concomitant]
  2. AMOX-CLAV, 250MG/5ML SUSP 100ML, 50 MG [Suspect]
     Active Substance: AMOXICILLIN\CLAVULANATE POTASSIUM
     Indication: EAR INFECTION
     Dosage: 10 TEASPOON (S)  TWICE A DAY TAKEN BY MOUTH
     Route: 048

REACTIONS (1)
  - Rash [None]
